FAERS Safety Report 9322150 (Version 1)
Quarter: 2013Q2

REPORT INFORMATION
  Report Type: Report from Study
  Country: SE (occurrence: SE)
  Receive Date: 20130531
  Receipt Date: 20130531
  Transmission Date: 20140414
  Serious: Yes (Other)
  Sender: FDA-Public Use
  Company Number: SE-ABBOTT-13P-150-1094142-00

PATIENT
  Sex: Female

DRUGS (8)
  1. HUMIRA [Suspect]
     Indication: CROHN^S DISEASE
     Dosage: START DOSE
     Route: 058
     Dates: start: 20070205, end: 20070205
  2. HUMIRA [Suspect]
     Dosage: START DOSE
     Route: 058
     Dates: start: 20100623
  3. HUMIRA [Suspect]
     Route: 058
     Dates: end: 20070903
  4. HUMIRA [Suspect]
     Route: 058
     Dates: start: 20070903, end: 20071221
  5. HUMIRA [Suspect]
     Route: 058
     Dates: start: 20071221, end: 20100112
  6. HUMIRA [Suspect]
     Route: 058
     Dates: start: 20100623
  7. PREDNISOLONE [Concomitant]
     Indication: PRODUCT USED FOR UNKNOWN INDICATION
  8. AZATHIOPRIN [Concomitant]
     Indication: PRODUCT USED FOR UNKNOWN INDICATION

REACTIONS (4)
  - Pyrexia [Unknown]
  - Fatigue [Unknown]
  - Local reaction [Unknown]
  - Infection [Unknown]
